FAERS Safety Report 11199015 (Version 1)
Quarter: 2015Q2

REPORT INFORMATION
  Report Type: Spontaneous
  Country: US (occurrence: US)
  Receive Date: 20150618
  Receipt Date: 20150618
  Transmission Date: 20150821
  Serious: No
  Sender: FDA-Public Use
  Company Number: US-TEVA-553365USA

PATIENT
  Sex: Male

DRUGS (1)
  1. CIPROFLOXACIN. [Suspect]
     Active Substance: CIPROFLOXACIN
     Indication: PROSTATE INFECTION
     Dosage: DOSE AND FREQUENCY NOT PROVIDED
     Dates: start: 20150325

REACTIONS (3)
  - Nausea [Recovering/Resolving]
  - Blood glucose decreased [Unknown]
  - Product use issue [Unknown]
